FAERS Safety Report 5227692-1 (Version None)
Quarter: 2007Q1

REPORT INFORMATION
  Report Type: 
  Country: None (occurrence: None)
  Receive Date: 20070202
  Receipt Date: 20070123
  Transmission Date: 20070707
  Serious: Yes (Hospitalization)
  Sender: FDA-Public Use
  Company Number: FR-ABBOTT-07P-056-0356084-00

PATIENT
  Age: 44 Year
  Sex: Male

DRUGS (7)
  1. DEPAKENE [Suspect]
     Indication: EPILEPSY
     Route: 048
     Dates: start: 19960101
  2. CLOBAZAM [Suspect]
     Indication: EPILEPSY
     Route: 048
     Dates: start: 19960101
  3. CARBAMAZEPINE [Suspect]
     Indication: EPILEPSY
     Route: 048
     Dates: start: 19960101
  4. CANDESARTAN CILEXETIL [Suspect]
     Indication: HYPERTENSION
     Route: 048
     Dates: start: 20040101
  5. MONTELUKAST [Suspect]
     Indication: ASTHMA
     Route: 048
     Dates: start: 20040101
  6. DESLORATIDINE [Suspect]
     Indication: RHINITIS
     Route: 048
     Dates: start: 20061117, end: 20061123
  7. ACETAMINOPHEN AND CODEINE PHOSPHATE [Concomitant]
     Indication: DRUG USE FOR UNKNOWN INDICATION
     Route: 048
     Dates: start: 20060601, end: 20060601

REACTIONS (11)
  - ALANINE AMINOTRANSFERASE INCREASED [None]
  - ASTHMA [None]
  - CHOLINERGIC SYNDROME [None]
  - GAMMA-GLUTAMYLTRANSFERASE INCREASED [None]
  - HEADACHE [None]
  - HYPERTENSION [None]
  - HYPOTHERMIA [None]
  - PHOTOPHOBIA [None]
  - RHINITIS [None]
  - VERTIGO [None]
  - VOMITING [None]
